FAERS Safety Report 15207027 (Version 1)
Quarter: 2018Q3

REPORT INFORMATION
  Report Type: Other
  Country: CA (occurrence: CA)
  Receive Date: 20180727
  Receipt Date: 20180727
  Transmission Date: 20181010
  Serious: Yes (Other)
  Sender: FDA-Public Use
  Company Number: CA-APOTEX-2018AP017669

PATIENT
  Age: 81 Year
  Sex: Female
  Weight: 72 kg

DRUGS (1)
  1. SERTRALINE [Suspect]
     Active Substance: SERTRALINE HYDROCHLORIDE
     Indication: STRESS
     Dosage: 25 MG, QD
     Route: 048

REACTIONS (2)
  - Tension headache [Recovered/Resolved]
  - Head discomfort [Recovered/Resolved]
